FAERS Safety Report 24287206 (Version 1)
Quarter: 2024Q3

REPORT INFORMATION
  Report Type: Spontaneous
  Country: US (occurrence: None)
  Receive Date: 20240903
  Receipt Date: 20240903
  Transmission Date: 20241017
  Serious: Yes (Hospitalization)
  Sender: Public
  Company Number: None

PATIENT
  Sex: Female
  Weight: 99.79 kg

DRUGS (5)
  1. WINREVAIR [Suspect]
     Active Substance: SOTATERCEPT-CSRK
     Indication: Pulmonary arterial hypertension
     Dosage: 1.5ML EVERY 3 WEEKS SQ
     Route: 058
     Dates: start: 202406
  2. REMODULIN [Suspect]
     Active Substance: TREPROSTINIL
  3. STERILE DILEUNT FOR REMOLDULIN [Concomitant]
  4. DEVICE [Concomitant]
     Active Substance: DEVICE
  5. OPSUMIT [Concomitant]
     Active Substance: MACITENTAN

REACTIONS (1)
  - Road traffic accident [None]
